FAERS Safety Report 5158194-9 (Version None)
Quarter: 2006Q4

REPORT INFORMATION
  Report Type: 
  Country: None (occurrence: None)
  Receive Date: 20061120
  Receipt Date: 20061120
  Transmission Date: 20070319
  Serious: No
  Sender: FDA-Public Use
  Company Number: None

PATIENT
  Sex: Female
  Weight: 48.1 kg

DRUGS (3)
  1. CISPLATIN [Suspect]
     Dosage: 70.6 MG; 50MG/M2 DAY 1
  2. DOXORUBICIN HYDROCHLORIDE [Suspect]
     Dosage: 63.5  MG; 45MG/M2 IV DAY 1
     Route: 042
  3. TAXOL [Suspect]
     Dosage: 225.9 MG; 3HR 160MG/M2 DAY 2

REACTIONS (2)
  - NEUTROPENIA [None]
  - SIMILAR REACTION ON PREVIOUS EXPOSURE TO DRUG [None]
